FAERS Safety Report 7744159-7 (Version None)
Quarter: 2011Q3

REPORT INFORMATION
  Report Type: 
  Country: None (occurrence: None)
  Receive Date: 20110912
  Receipt Date: 20110902
  Transmission Date: 20111222
  Serious: Yes (Hospitalization)
  Sender: FDA-Public Use
  Company Number: PR-PFIZER INC-2007065896

PATIENT
  Age: 30 Year
  Sex: Female

DRUGS (3)
  1. NAVANE [Suspect]
     Dosage: 40 MG
     Dates: start: 20070701, end: 20070713
  2. LAMICTAL [Suspect]
     Indication: BIPOLAR I DISORDER
     Dosage: 200 MG
     Dates: start: 20040101, end: 20070713
  3. SEROQUEL [Suspect]
     Indication: BIPOLAR I DISORDER
     Dates: start: 20040101

REACTIONS (1)
  - RASH [None]
